FAERS Safety Report 11641131 (Version 1)
Quarter: 2015Q4

REPORT INFORMATION
  Report Type: Report from Study
  Country: CA (occurrence: CA)
  Receive Date: 20151019
  Receipt Date: 20151019
  Transmission Date: 20160304
  Serious: Yes (Other)
  Sender: FDA-Public Use
  Company Number: CA-JNJFOC-20150918890

PATIENT
  Age: 74 Year
  Sex: Female

DRUGS (1)
  1. STELARA [Suspect]
     Active Substance: USTEKINUMAB
     Indication: PSORIASIS
     Route: 058
     Dates: start: 20120111

REACTIONS (3)
  - Pulmonary mass [Unknown]
  - Bronchitis [Not Recovered/Not Resolved]
  - Pelvic neoplasm [Unknown]

NARRATIVE: CASE EVENT DATE: 20150904
